FAERS Safety Report 9171080 (Version 2)
Quarter: 2013Q3

REPORT INFORMATION
  Report Type: Spontaneous
  Country: US (occurrence: US)
  Receive Date: 20130319
  Receipt Date: 20130802
  Transmission Date: 20140515
  Serious: Yes (Hospitalization, Other)
  Sender: FDA-Public Use
  Company Number: US-BRISTOL-MYERS SQUIBB COMPANY-17464454

PATIENT
  Sex: Female

DRUGS (10)
  1. PRAVASTATIN SODIUM [Suspect]
  2. WARFARIN SODIUM [Suspect]
  3. METOPROLOL [Concomitant]
  4. KLOR-CON [Concomitant]
  5. ALPHAGAN [Concomitant]
  6. DILTIAZEM HCL [Concomitant]
  7. DIGOXIN [Concomitant]
  8. CALCIUM CITRATE [Concomitant]
  9. ZINC [Concomitant]
  10. DORZOLAMIDE HCL + TIMOLOL MALEATE [Concomitant]

REACTIONS (5)
  - Atrial flutter [Unknown]
  - International normalised ratio fluctuation [Unknown]
  - Glaucoma [Unknown]
  - Cataract [Unknown]
  - Thyroid neoplasm [Unknown]
